FAERS Safety Report 18610672 (Version 1)
Quarter: 2020Q4

REPORT INFORMATION
  Report Type: Report from Study
  Country: US (occurrence: US)
  Receive Date: 20201214
  Receipt Date: 20201214
  Transmission Date: 20210114
  Serious: No
  Sender: FDA-Public Use
  Company Number: US-AGIOS-2012US02333

PATIENT

DRUGS (2)
  1. TIBSOVO [Suspect]
     Active Substance: IVOSIDENIB
     Indication: CHOLANGIOCARCINOMA
     Dosage: 250 MILLIGRAM, 2 TABLETS (500 MG), QD
     Route: 048
     Dates: start: 20201125
  2. SIMVASTATIN. [Concomitant]
     Active Substance: SIMVASTATIN
     Indication: PRODUCT USED FOR UNKNOWN INDICATION

REACTIONS (2)
  - Puncture site haemorrhage [Unknown]
  - Off label use [Not Recovered/Not Resolved]

NARRATIVE: CASE EVENT DATE: 20201125
